FAERS Safety Report 5512491-3 (Version None)
Quarter: 2007Q4

REPORT INFORMATION
  Report Type: 
  Country: None (occurrence: None)
  Receive Date: 20071112
  Receipt Date: 20070522
  Transmission Date: 20080405
  Serious: No
  Sender: FDA-Public Use
  Company Number: A0652385A

PATIENT
  Age: 69 Year
  Sex: Female

DRUGS (8)
  1. AVANDAMET [Suspect]
     Route: 048
     Dates: start: 20060101, end: 20060101
  2. AVANDIA [Suspect]
     Dosage: 2MG PER DAY
     Route: 048
     Dates: start: 20040101
  3. METFORMIN [Concomitant]
  4. POTASSIUM CHLORIDE [Concomitant]
  5. PRILOSEC [Concomitant]
  6. DYAZIDE [Concomitant]
  7. WATER PILL [Concomitant]
  8. HYZAAR [Concomitant]

REACTIONS (6)
  - DEHYDRATION [None]
  - EYE DISORDER [None]
  - MUSCLE SPASMS [None]
  - MUSCLE TIGHTNESS [None]
  - SWELLING [None]
  - WEIGHT INCREASED [None]
